FAERS Safety Report 6137468-9 (Version None)
Quarter: 2009Q1

REPORT INFORMATION
  Report Type: 
  Country: None (occurrence: None)
  Receive Date: 20090326
  Receipt Date: 20090316
  Transmission Date: 20090719
  Serious: Yes (Death)
  Sender: FDA-Public Use
  Company Number: GXKR2009FR03356

PATIENT
  Age: 47 Year
  Sex: Female

DRUGS (10)
  1. PREDNISONE TAB [Suspect]
     Indication: AUTOIMMUNE DISORDER
     Dosage: 20 MG, DAILY ; 30 MG;DAILY ; 20 MG;DAILY; 15 MG, DAILY; 20 MG, DAILY; 17 MG, DAILY
     Dates: start: 19950601
  2. PREDNISONE TAB [Suspect]
     Indication: AUTOIMMUNE DISORDER
     Dosage: 20 MG, DAILY ; 30 MG;DAILY ; 20 MG;DAILY; 15 MG, DAILY; 20 MG, DAILY; 17 MG, DAILY
     Dates: start: 19980101
  3. PREDNISONE TAB [Suspect]
     Indication: AUTOIMMUNE DISORDER
     Dosage: 20 MG, DAILY ; 30 MG;DAILY ; 20 MG;DAILY; 15 MG, DAILY; 20 MG, DAILY; 17 MG, DAILY
     Dates: start: 20021101
  4. PREDNISONE TAB [Suspect]
     Indication: AUTOIMMUNE DISORDER
     Dosage: 20 MG, DAILY ; 30 MG;DAILY ; 20 MG;DAILY; 15 MG, DAILY; 20 MG, DAILY; 17 MG, DAILY
     Dates: start: 20040101
  5. RITUXIMAB (RITUXIMAB) [Suspect]
     Indication: AUTOIMMUNE DISORDER
     Dosage: 375 MG/M2, QW, 4 TIMES, INFUSION
     Dates: start: 20030901
  6. RITUXIMAB (RITUXIMAB) [Suspect]
     Indication: PEMPHIGUS
     Dosage: 375 MG/M2, QW, 4 TIMES, INFUSION
     Dates: start: 20030901
  7. RITUXIMAB (RITUXIMAB) [Suspect]
     Indication: POLYMYOSITIS
     Dosage: 375 MG/M2, QW, 4 TIMES, INFUSION
     Dates: start: 20030901
  8. CYCLOPHOSPHAMIDE [Suspect]
     Dosage: INFUSION
     Dates: start: 20041201
  9. IMMUNE GLOBULIN (HUMAN) [Concomitant]
  10. COLCHICINE (COLCHICINE) [Concomitant]

REACTIONS (4)
  - B-CELL LYMPHOMA [None]
  - EPSTEIN-BARR VIRUS INFECTION [None]
  - RENAL AMYLOIDOSIS [None]
  - SEPTIC SHOCK [None]
